FAERS Safety Report 15210491 (Version 2)
Quarter: 2018Q3

REPORT INFORMATION
  Report Type: Report from Study
  Country: None (occurrence: BG)
  Receive Date: 20180727
  Receipt Date: 20180904
  Transmission Date: 20181010
  Serious: Yes (Other)
  Sender: FDA-Public Use
  Company Number: BG-ABBVIE-18S-022-2430852-00

PATIENT
  Age: 70 Year
  Sex: Female

DRUGS (1)
  1. DUODOPA [Suspect]
     Active Substance: CARBIDOPA\LEVODOPA
     Indication: PARKINSON^S DISEASE
     Dosage: MD 11 ML??CR 3.7 ML/H??EX 1 ML
     Route: 050
     Dates: start: 20180206

REACTIONS (9)
  - Faeces soft [Recovered/Resolved]
  - Dolichocolon [Recovered/Resolved]
  - Abdominal pain upper [Recovered/Resolved]
  - Gastrointestinal disorder [Recovered/Resolved]
  - Decreased appetite [Recovered/Resolved]
  - Pyrexia [Recovered/Resolved]
  - Clostridium difficile infection [Recovered/Resolved]
  - Bronchitis chronic [Recovered/Resolved]
  - Wound [Recovered/Resolved]

NARRATIVE: CASE EVENT DATE: 20180724
